FAERS Safety Report 10047422 (Version 2)
Quarter: 2014Q2

REPORT INFORMATION
  Report Type: Spontaneous
  Country: CA (occurrence: CA)
  Receive Date: 20140331
  Receipt Date: 20140402
  Transmission Date: 20141212
  Serious: Yes (Life-Threatening, Hospitalization, Other)
  Sender: FDA-Public Use
  Company Number: CA-JNJFOC-20140314962

PATIENT
  Sex: Male
  Weight: 97.5 kg

DRUGS (7)
  1. XARELTO [Suspect]
     Indication: CEREBROVASCULAR ACCIDENT PROPHYLAXIS
     Route: 048
     Dates: start: 201301
  2. XARELTO [Suspect]
     Indication: ATRIAL FIBRILLATION
     Route: 048
     Dates: start: 201301
  3. CRESTOR [Concomitant]
     Route: 048
  4. METFORMIN [Concomitant]
     Route: 048
  5. BISOPROLOL [Concomitant]
     Route: 048
  6. ALTACE [Concomitant]
     Route: 048
  7. PANTOLOC [Concomitant]
     Route: 048

REACTIONS (1)
  - Ischaemic stroke [Recovered/Resolved with Sequelae]
